FAERS Safety Report 24308196 (Version 2)
Quarter: 2024Q4

REPORT INFORMATION
  Report Type: Report from Study
  Country: FR (occurrence: FR)
  Receive Date: 20240911
  Receipt Date: 20241219
  Transmission Date: 20250115
  Serious: Yes (Hospitalization, Disabling)
  Sender: TAKEDA
  Company Number: FR-TAKEDA-2024TUS090309

PATIENT
  Age: 91 Year
  Sex: Female

DRUGS (15)
  1. VELAGLUCERASE ALFA [Suspect]
     Active Substance: VELAGLUCERASE ALFA
     Indication: Gaucher^s disease
     Dosage: 60 INTERNATIONAL UNIT/KILOGRAM, Q2WEEKS
     Dates: start: 20181107
  2. LERCANIDIPINE [Concomitant]
     Active Substance: LERCANIDIPINE
     Indication: Hypertension
     Dosage: 10 MILLIGRAM, SINGLE
     Dates: start: 2011
  3. DICLOFENAC [Concomitant]
     Active Substance: DICLOFENAC
     Indication: Osteoporosis
     Dosage: UNK
     Route: 061
  4. ACETAMINOPHEN [Concomitant]
     Active Substance: ACETAMINOPHEN
     Indication: Osteoporosis
     Dosage: 500 MILLIGRAM
  5. FOSAVANCE [Concomitant]
     Active Substance: ALENDRONATE SODIUM\CHOLECALCIFEROL
     Indication: Osteoporosis
     Dosage: 70 MILLIGRAM, 1/WEEK
     Dates: start: 2015
  6. FOSAVANCE [Concomitant]
     Active Substance: ALENDRONATE SODIUM\CHOLECALCIFEROL
     Dosage: UNK
  7. ENALAPRIL [Concomitant]
     Active Substance: ENALAPRIL
     Indication: Hypertension
     Dosage: 20 MILLIGRAM, SINGLE
     Dates: start: 2016
  8. FOSFOMYCIN [Concomitant]
     Active Substance: FOSFOMYCIN
     Indication: Pyelonephritis
     Dosage: 3 GRAM
     Dates: start: 20201030, end: 20201031
  9. CEFTRIAXONE SODIUM [Concomitant]
     Active Substance: CEFTRIAXONE SODIUM
     Indication: Haematuria
     Dosage: 1 GRAM, QD
     Dates: start: 20201104, end: 20210210
  10. COTRIMOXAZOLE [Concomitant]
     Active Substance: SULFAMETHOXAZOLE\TRIMETHOPRIM
     Indication: Pyelonephritis
     Dosage: 800 MILLIGRAM, BID
     Dates: start: 20201107, end: 20201113
  11. NITROFURANTOIN [Concomitant]
     Active Substance: NITROFURANTOIN
     Indication: Cystitis
     Dosage: 100 MILLIGRAM, TID
     Dates: start: 20210905, end: 20210911
  12. PREDNISONE [Concomitant]
     Active Substance: PREDNISONE
     Indication: Giant cell arteritis
     Dosage: 30 MILLIGRAM, QD
     Dates: start: 20211002
  13. CALCIUM CARBONATE\CHOLECALCIFEROL [Concomitant]
     Active Substance: CALCIUM CARBONATE\CHOLECALCIFEROL
     Indication: Vitamin D deficiency
     Dosage: 500 MILLIGRAM, QD
     Dates: start: 20220411
  14. CICAPLAST [Concomitant]
     Indication: Erythema
     Dosage: UNK UNK, TID
     Route: 061
     Dates: start: 20220713, end: 20230623
  15. AUGMENTIN [Concomitant]
     Active Substance: AMOXICILLIN\CLAVULANATE POTASSIUM
     Indication: Arthritis
     Dosage: 1 GRAM, TID
     Dates: start: 20230127, end: 20230217

REACTIONS (2)
  - Fall [Recovered/Resolved]
  - Fracture [Recovered/Resolved]

NARRATIVE: CASE EVENT DATE: 20240820
